FAERS Safety Report 5799750-4 (Version None)
Quarter: 2008Q3

REPORT INFORMATION
  Report Type: 
  Country: None (occurrence: None)
  Receive Date: 20080701
  Receipt Date: 20080616
  Transmission Date: 20090109
  Serious: Yes (Hospitalization)
  Sender: FDA-Public Use
  Company Number: 2008BI012084

PATIENT
  Age: 67 Year
  Sex: Female
  Weight: 86.8638 kg

DRUGS (1)
  1. AVONEX [Suspect]
     Indication: MULTIPLE SCLEROSIS
     Dosage: 30 UG; QW; IM
     Route: 030
     Dates: start: 19960501

REACTIONS (7)
  - ASTHENIA [None]
  - BONE DISORDER [None]
  - CELLULITIS [None]
  - MEMORY IMPAIRMENT [None]
  - POOR PERIPHERAL CIRCULATION [None]
  - STAPHYLOCOCCAL INFECTION [None]
  - TOE AMPUTATION [None]
